FAERS Safety Report 19941421 (Version 1)
Quarter: 2021Q4

REPORT INFORMATION
  Report Type: Spontaneous
  Country: US (occurrence: US)
  Receive Date: 20211011
  Receipt Date: 20211011
  Transmission Date: 20220303
  Serious: No
  Sender: FDA-Public Use
  Company Number: US-JAZZ-2021-US-010759

PATIENT
  Age: 33 Year
  Sex: Male

DRUGS (4)
  1. SUNOSI [Suspect]
     Active Substance: SOLRIAMFETOL
     Indication: Somnolence
     Dosage: 37.5 MILLIGRAM, DAILY
     Route: 048
     Dates: start: 202105, end: 20210609
  2. SUNOSI [Suspect]
     Active Substance: SOLRIAMFETOL
     Indication: Narcolepsy
  3. CELEXA [Concomitant]
     Active Substance: CITALOPRAM HYDROBROMIDE
  4. CLONAZEPAM [Concomitant]
     Active Substance: CLONAZEPAM
     Indication: Anxiety

REACTIONS (2)
  - Decreased appetite [Unknown]
  - Anxiety [Unknown]

NARRATIVE: CASE EVENT DATE: 20210501
